FAERS Safety Report 10154696 (Version 1)
Quarter: 2014Q2

REPORT INFORMATION
  Report Type: Spontaneous
  Country: US (occurrence: None)
  Receive Date: 20140505
  Receipt Date: 20140505
  Transmission Date: 20141212
  Serious: Yes (Other)
  Sender: FDA-Public Use
  Company Number: None

PATIENT
  Age: 39 Year
  Sex: Female
  Weight: 54.43 kg

DRUGS (1)
  1. NICOTINE POLACRILEX GUM [Suspect]
     Indication: NICOTINE DEPENDENCE
     Dates: start: 20140425, end: 20140429

REACTIONS (3)
  - Amnesia [None]
  - Road traffic accident [None]
  - Loss of consciousness [None]
